FAERS Safety Report 7637394-X (Version None)
Quarter: 2011Q3

REPORT INFORMATION
  Report Type: 
  Country: None (occurrence: None)
  Receive Date: 20110726
  Receipt Date: 20110721
  Transmission Date: 20111222
  Serious: No
  Sender: FDA-Public Use
  Company Number: CA-PFIZER INC-2011150020

PATIENT
  Age: 35 Year
  Sex: Female

DRUGS (3)
  1. PLAQUENIL [Suspect]
  2. ARTHROTEC [Suspect]
  3. METHOTREXATE SODIUM [Suspect]

REACTIONS (4)
  - DRUG INEFFECTIVE [None]
  - GASTRIC DISORDER [None]
  - PAIN [None]
  - ADVERSE EVENT [None]
